FAERS Safety Report 11998077 (Version 1)
Quarter: 2016Q1

REPORT INFORMATION
  Report Type: Spontaneous
  Country: US (occurrence: None)
  Receive Date: 20160202
  Receipt Date: 20160202
  Transmission Date: 20160526
  Serious: Yes (Other)
  Sender: FDA-Public Use
  Company Number: None

PATIENT
  Sex: Male
  Weight: 68.49 kg

DRUGS (1)
  1. ORENCIA [Suspect]
     Active Substance: ABATACEPT
     Indication: RHEUMATOID ARTHRITIS
     Dosage: 125 MG/ML EVERY WEEK SUBCUTANEOUS??SHIPPED 12/10/13
     Route: 058
     Dates: start: 20131210

REACTIONS (2)
  - Tuberculosis [None]
  - Chronic obstructive pulmonary disease [None]
